FAERS Safety Report 6674133-3 (Version None)
Quarter: 2010Q2

REPORT INFORMATION
  Report Type: 
  Country: None (occurrence: None)
  Receive Date: 20100409
  Receipt Date: 20100326
  Transmission Date: 20101027
  Serious: Yes (Life-Threatening)
  Sender: FDA-Public Use
  Company Number: DE-RANBAXY-2010RR-32918

PATIENT
  Age: 67 Year
  Sex: Female
  Weight: 67 kg

DRUGS (2)
  1. CODEINE SULFATE [Suspect]
     Indication: COUGH
     Dosage: 1 DF, BID
  2. STANGYL [Suspect]
     Dosage: UNK

REACTIONS (2)
  - DIZZINESS [None]
  - SYNCOPE [None]
